FAERS Safety Report 20835828 (Version 1)
Quarter: 2022Q2

REPORT INFORMATION
  Report Type: 
  Country: None (occurrence: None)
  Receive Date: 20220516
  Receipt Date: 20220516
  Transmission Date: 20220721
  Serious: No
  Sender: FDA-Public Use
  Company Number: CN-ROCHE-3098120

PATIENT

DRUGS (2)
  1. RITUXIMAB [Suspect]
     Active Substance: RITUXIMAB
     Dosage: (MAXIMUM 600 MG) WEEKLY X 4 TIMES
  2. PREDNISONE [Suspect]
     Active Substance: PREDNISONE
     Dosage: (MAXIMUM 60 MG) FOR 1 MONTH THEN TAPERED OVER 3 MONTHS.

REACTIONS (1)
  - Nephrotic syndrome [None]
